FAERS Safety Report 10628118 (Version 1)
Quarter: 2014Q4

REPORT INFORMATION
  Report Type: Spontaneous
  Country: US (occurrence: US)
  Receive Date: 20141205
  Receipt Date: 20141205
  Transmission Date: 20150529
  Serious: No
  Sender: FDA-Public Use
  Company Number: US-BRISTOL-MYERS SQUIBB COMPANY-21085238

PATIENT
  Age: 77 Year
  Sex: Female

DRUGS (8)
  1. ZETIA [Concomitant]
     Active Substance: EZETIMIBE
  2. BONIVA [Concomitant]
     Active Substance: IBANDRONATE SODIUM
     Route: 048
     Dates: start: 201406
  3. SYNTHROID [Concomitant]
     Active Substance: LEVOTHYROXINE SODIUM
  4. CENTRUM [Concomitant]
     Active Substance: VITAMINS
  5. COUMADIN [Suspect]
     Active Substance: WARFARIN SODIUM
     Dosage: DOSE INCREASED: 6MG
     Route: 048
     Dates: start: 1995
  6. LIPITOR [Concomitant]
     Active Substance: ATORVASTATIN CALCIUM
  7. VITAMIN D [Concomitant]
     Active Substance: CHOLECALCIFEROL
  8. DILTIAZEM HYDROCHLORIDE EXTENDED RELEASE [Concomitant]
     Active Substance: DILTIAZEM HYDROCHLORIDE

REACTIONS (2)
  - International normalised ratio decreased [Unknown]
  - Stress [Unknown]

NARRATIVE: CASE EVENT DATE: 201405
